FAERS Safety Report 20076818 (Version 2)
Quarter: 2022Q1

REPORT INFORMATION
  Report Type: Report from Study
  Country: US (occurrence: US)
  Receive Date: 20211116
  Receipt Date: 20220223
  Transmission Date: 20220423
  Serious: Yes (Other)
  Sender: FDA-Public Use
  Company Number: US-UCBSA-2021052657

PATIENT
  Sex: Male

DRUGS (2)
  1. LACOSAMIDE [Suspect]
     Active Substance: LACOSAMIDE
     Indication: Seizure
     Dosage: 150 MILLIGRAM, 2X/DAY (BID)
  2. KEPPRA [Suspect]
     Active Substance: LEVETIRACETAM
     Indication: Product used for unknown indication
     Dosage: UNK

REACTIONS (5)
  - Head injury [Not Recovered/Not Resolved]
  - Seizure [Not Recovered/Not Resolved]
  - Fall [Not Recovered/Not Resolved]
  - Metastatic neoplasm [Not Recovered/Not Resolved]
  - Amnesia [Not Recovered/Not Resolved]
